FAERS Safety Report 6399154-X (Version None)
Quarter: 2009Q4

REPORT INFORMATION
  Report Type: 
  Country: None (occurrence: None)
  Receive Date: 20091008
  Receipt Date: 20090923
  Transmission Date: 20100525
  Serious: Yes (Death, Hospitalization)
  Sender: FDA-Public Use
  Company Number: A-US2009-24819

PATIENT
  Age: 64 Year
  Sex: Female

DRUGS (2)
  1. TRACLEER [Suspect]
     Indication: PULMONARY ARTERIAL HYPERTENSION
     Dosage: 125 MG, BID, ORAL
     Route: 048
     Dates: start: 20080628
  2. OXYGEN (OXYGEN) [Concomitant]

REACTIONS (9)
  - ANOXIC ENCEPHALOPATHY [None]
  - BRAIN DEATH [None]
  - CARDIO-RESPIRATORY ARREST [None]
  - CHEST PAIN [None]
  - HEART RATE INCREASED [None]
  - HYPERCAPNIA [None]
  - HYPERTENSION [None]
  - NAUSEA [None]
  - VOMITING [None]
